FAERS Safety Report 8589569-3 (Version None)
Quarter: 2012Q3

REPORT INFORMATION
  Report Type: 
  Country: None (occurrence: None)
  Receive Date: 20120813
  Receipt Date: 20120730
  Transmission Date: 20120928
  Serious: Yes (Other)
  Sender: FDA-Public Use
  Company Number: CA-ROCHE-1008483

PATIENT
  Sex: Female

DRUGS (11)
  1. OMEPRAZOLE [Concomitant]
  2. XOLAIR [Suspect]
     Indication: ASTHMA
     Route: 058
     Dates: start: 20090422
  3. ALENDRONATE SODIUM [Concomitant]
  4. ALBUTEROL SULATE [Concomitant]
  5. ALVESCO [Concomitant]
  6. FLUTICASONE PROPIONATE [Concomitant]
  7. TRAZODONE HYDROCHLORIDE [Concomitant]
  8. SINGULAIR [Concomitant]
  9. THEOPHYLLINE [Concomitant]
  10. ESCITALOPRAM [Concomitant]
  11. FLUTICASONE PROPIONATE [Concomitant]

REACTIONS (1)
  - OEDEMA [None]
